FAERS Safety Report 10041697 (Version 2)
Quarter: 2014Q2

REPORT INFORMATION
  Report Type: Spontaneous
  Country: US (occurrence: US)
  Receive Date: 20140327
  Receipt Date: 20140626
  Transmission Date: 20141212
  Serious: No
  Sender: FDA-Public Use
  Company Number: US-PFIZER INC-2014085029

PATIENT
  Age: 82 Year
  Sex: Female

DRUGS (1)
  1. TOVIAZ [Suspect]
     Indication: BLADDER SPASM
     Dosage: 8 MG, 1X/DAY
     Route: 048
     Dates: start: 20140224, end: 20140302

REACTIONS (1)
  - Drug ineffective [Unknown]
